FAERS Safety Report 9417844 (Version 1)
Quarter: 2013Q3

REPORT INFORMATION
  Report Type: Spontaneous
  Country: US (occurrence: US)
  Receive Date: 20130724
  Receipt Date: 20130724
  Transmission Date: 20140515
  Serious: No
  Sender: FDA-Public Use
  Company Number: US-BAUSCH-BL-2013-000070

PATIENT
  Age: 58 Year
  Sex: Female

DRUGS (1)
  1. OPCON-A [Suspect]
     Indication: EYE IRRITATION
     Dosage: 2 DROPS IN EACH EYE, ONCE
     Route: 047
     Dates: start: 201301, end: 201301

REACTIONS (2)
  - Expired drug administered [Recovered/Resolved]
  - Eye irritation [Recovered/Resolved]
